FAERS Safety Report 8326669-7 (Version None)
Quarter: 2012Q2

REPORT INFORMATION
  Report Type: 
  Country: None (occurrence: None)
  Receive Date: 20120501
  Receipt Date: 20120426
  Transmission Date: 20120825
  Serious: Yes (Hospitalization, Other)
  Sender: FDA-Public Use
  Company Number: US-PURDUE-USA-2011-0074104

PATIENT
  Sex: Male

DRUGS (27)
  1. AVINZA [Suspect]
     Indication: PRODUCT USED FOR UNKNOWN INDICATION
     Dosage: 100 MG, BID
  2. EPHEDRINE [Suspect]
     Indication: DRUG ABUSE
  3. FLEXERIL [Concomitant]
     Dosage: 20 MG, DAILY
  4. TRAZODONE HCL [Concomitant]
     Indication: PRODUCT USED FOR UNKNOWN INDICATION
  5. FLEXERIL [Concomitant]
     Indication: PRODUCT USED FOR UNKNOWN INDICATION
     Dosage: 10 MG, HS
     Dates: start: 19990817
  6. WELLBUTRIN [Concomitant]
     Indication: PRODUCT USED FOR UNKNOWN INDICATION
     Dosage: 150 MG, DAILY
  7. ANDROSTENEDIONE [Concomitant]
     Indication: PRODUCT USED FOR UNKNOWN INDICATION
  8. ELAVIL [Concomitant]
     Indication: SLEEP DISORDER
  9. NAPROSYN [Concomitant]
     Indication: PRODUCT USED FOR UNKNOWN INDICATION
     Dosage: 500 MG, BID
  10. YOHIMBINE [Concomitant]
     Indication: PRODUCT USED FOR UNKNOWN INDICATION
     Dosage: UNK, PRN
  11. NSAID'S [Concomitant]
     Indication: PRODUCT USED FOR UNKNOWN INDICATION
  12. ALBUTEROL [Suspect]
     Indication: DRUG ABUSE
  13. ADDERALL 5 [Suspect]
     Indication: DRUG ABUSE
  14. ROXICODONE [Suspect]
     Indication: PRODUCT USED FOR UNKNOWN INDICATION
     Dosage: UNK
     Dates: start: 19991001, end: 20101122
  15. VIOXX [Concomitant]
     Indication: PRODUCT USED FOR UNKNOWN INDICATION
     Dosage: 50 MG, DAILY
     Dates: start: 19990817
  16. ACIPHEX [Concomitant]
     Indication: PRODUCT USED FOR UNKNOWN INDICATION
     Dosage: 20 MG, DAILY
  17. CLENBUTEROL [Concomitant]
     Indication: PRODUCT USED FOR UNKNOWN INDICATION
  18. CYTOTEC [Concomitant]
     Indication: PRODUCT USED FOR UNKNOWN INDICATION
  19. ETHANOL [Suspect]
     Indication: PRODUCT USED FOR UNKNOWN INDICATION
  20. SEROQUEL [Suspect]
     Indication: INSOMNIA
     Dosage: UNK, HS
  21. PERCOCET [Suspect]
     Indication: PAIN
     Dosage: 7.5 MG, Q8H PRN
     Dates: start: 19990817
  22. RELAFEN [Concomitant]
     Indication: PAIN
  23. BACTRIM [Concomitant]
     Indication: PRODUCT USED FOR UNKNOWN INDICATION
  24. OXYCONTIN [Suspect]
     Indication: PAIN
     Dosage: UNK UNK, SEE TEXT
     Dates: start: 19990817, end: 20101122
  25. OXYCODONE HCL [Suspect]
     Indication: PRODUCT USED FOR UNKNOWN INDICATION
     Dosage: UNK
     Dates: start: 19991001, end: 20101122
  26. PERCOCET [Suspect]
     Dosage: UNK UNK, Q4H PRN
  27. IBUPROFEN (ADVIL) [Concomitant]
     Indication: PRODUCT USED FOR UNKNOWN INDICATION

REACTIONS (52)
  - DRUG DEPENDENCE [None]
  - RESPIRATORY ARREST [None]
  - CYANOSIS [None]
  - MEMORY IMPAIRMENT [None]
  - COGNITIVE DISORDER [None]
  - PANIC DISORDER [None]
  - DECREASED INTEREST [None]
  - MULTIPLE DRUG OVERDOSE [None]
  - SUBSTANCE ABUSE [None]
  - SHOCK [None]
  - MENTAL STATUS CHANGES [None]
  - DRUG WITHDRAWAL SYNDROME [None]
  - NIGHTMARE [None]
  - MUSCULAR WEAKNESS [None]
  - VOMITING [None]
  - DEPRESSED MOOD [None]
  - POLLAKIURIA [None]
  - NAUSEA [None]
  - ERECTILE DYSFUNCTION [None]
  - BRAIN INJURY [None]
  - IMPAIRED DRIVING ABILITY [None]
  - IMPAIRED REASONING [None]
  - ANGER [None]
  - FEELING OF DESPAIR [None]
  - BLOOD PRESSURE INCREASED [None]
  - EAR INFECTION [None]
  - DYSURIA [None]
  - PAIN [None]
  - EMOTIONAL DISORDER [None]
  - HOSTILITY [None]
  - EMOTIONAL DISTRESS [None]
  - HYPERHIDROSIS [None]
  - MULTIPLE DRUG OVERDOSE ACCIDENTAL [None]
  - LOSS OF CONSCIOUSNESS [None]
  - CONFUSIONAL STATE [None]
  - THINKING ABNORMAL [None]
  - GENERAL PHYSICAL HEALTH DETERIORATION [None]
  - INSOMNIA [None]
  - MUSCLE ATROPHY [None]
  - POLYURIA [None]
  - CHEST PAIN [None]
  - MASS [None]
  - BLADDER DISCOMFORT [None]
  - SUICIDAL IDEATION [None]
  - ANXIETY [None]
  - DIZZINESS [None]
  - MENTAL IMPAIRMENT [None]
  - GASTROOESOPHAGEAL REFLUX DISEASE [None]
  - INJURY [None]
  - MENTAL DISORDER [None]
  - MUSCULOSKELETAL PAIN [None]
  - MALAISE [None]
